FAERS Safety Report 6694939-4 (Version None)
Quarter: 2010Q2

REPORT INFORMATION
  Report Type: 
  Country: None (occurrence: None)
  Receive Date: 20100423
  Receipt Date: 20100414
  Transmission Date: 20101027
  Serious: Yes (Death, Hospitalization, Other)
  Sender: FDA-Public Use
  Company Number: US-AMGEN-QUU393568

PATIENT
  Sex: Female

DRUGS (4)
  1. NPLATE [Suspect]
     Indication: IDIOPATHIC THROMBOCYTOPENIC PURPURA
     Dates: start: 20081017, end: 20081230
  2. WINRHO [Suspect]
     Dates: start: 20090109
  3. CORTICOSTEROIDS [Concomitant]
     Dates: start: 20080521
  4. CLAFORAN [Concomitant]

REACTIONS (15)
  - DEHYDRATION [None]
  - DIARRHOEA [None]
  - ECCHYMOSIS [None]
  - EXCORIATION [None]
  - HAEMOGLOBIN DECREASED [None]
  - HAEMOLYSIS [None]
  - HYPOTENSION [None]
  - METABOLIC ACIDOSIS [None]
  - OCCULT BLOOD POSITIVE [None]
  - PNEUMONIA [None]
  - RENAL FAILURE ACUTE [None]
  - SEPTIC SHOCK [None]
  - TACHYCARDIA [None]
  - UNRESPONSIVE TO STIMULI [None]
  - VASCULITIS [None]
